FAERS Safety Report 23099283 (Version 1)
Quarter: 2023Q4

REPORT INFORMATION
  Report Type: Spontaneous
  Country: US (occurrence: US)
  Receive Date: 20231024
  Receipt Date: 20231024
  Transmission Date: 20240110
  Serious: Yes (Hospitalization, Other)
  Sender: FDA-Public Use
  Company Number: US-LUPIN PHARMACEUTICALS INC.-2023-09133

PATIENT
  Age: 82 Year
  Sex: Male

DRUGS (1)
  1. RIFAMPIN [Suspect]
     Active Substance: RIFAMPIN
     Indication: Pulmonary tuberculosis
     Dosage: UNK
     Route: 065

REACTIONS (3)
  - Thrombocytopenia [Recovered/Resolved]
  - Rectal haemorrhage [Unknown]
  - Haemoglobin decreased [Unknown]
